FAERS Safety Report 8611756-6 (Version None)
Quarter: 2012Q3

REPORT INFORMATION
  Report Type: 
  Country: None (occurrence: None)
  Receive Date: 20120822
  Receipt Date: 20120816
  Transmission Date: 20120928
  Serious: Yes (Life-Threatening, Hospitalization)
  Sender: FDA-Public Use
  Company Number: FR-ROCHE-1103080

PATIENT
  Age: 42 Year
  Sex: Female

DRUGS (4)
  1. NICARDIPINE HCL [Concomitant]
     Dosage: 2 TABLETS DAILY
  2. PREDNISONE TAB [Concomitant]
  3. LEVOTHYROXINE SODIUM [Concomitant]
  4. MYCOPHENOLATE MOFETIL (CELLCEPT) [Suspect]
     Indication: PRODUCT USED FOR UNKNOWN INDICATION
     Dates: start: 20120510

REACTIONS (2)
  - HEPATIC STEATOSIS [None]
  - HEPATITIS CHOLESTATIC [None]
